FAERS Safety Report 8471081-3 (Version None)
Quarter: 2012Q2

REPORT INFORMATION
  Report Type: 
  Country: None (occurrence: None)
  Receive Date: 20120627
  Receipt Date: 20120404
  Transmission Date: 20120825
  Serious: No
  Sender: FDA-Public Use
  Company Number: US-GLAXOSMITHKLINE-A0972358A

PATIENT
  Age: 18 Year
  Sex: Female

DRUGS (2)
  1. TRILEPTAL [Concomitant]
  2. LAMICTAL [Suspect]
     Indication: EPILEPSY
     Dosage: 1TAB TWICE PER DAY
     Route: 048
     Dates: start: 20120101

REACTIONS (1)
  - OVERDOSE [None]
